FAERS Safety Report 6335680-7 (Version None)
Quarter: 2009Q3

REPORT INFORMATION
  Report Type: 
  Country: None (occurrence: None)
  Receive Date: 20090828
  Receipt Date: 20090817
  Transmission Date: 20100115
  Serious: Yes (Other)
  Sender: FDA-Public Use
  Company Number: AE-2009-144

PATIENT
  Age: 43 Year
  Sex: Male

DRUGS (8)
  1. ATENOLOL [Suspect]
  2. METFORMIN HCL [Suspect]
  3. SIMVASTATIN [Suspect]
  4. FLUCONAZOLE [Suspect]
     Indication: ORAL CANDIDIASIS
  5. CLOPIDOGREL [Suspect]
  6. GLICLAZIDE [Suspect]
  7. RAMIPRIL [Suspect]
  8. COTRIM [Suspect]
     Indication: PNEUMOCYSTIS JIROVECI PNEUMONIA

REACTIONS (4)
  - HYPOREFLEXIA [None]
  - RENAL FAILURE ACUTE [None]
  - RESPIRATORY FAILURE [None]
  - RHABDOMYOLYSIS [None]
